FAERS Safety Report 11402767 (Version 1)
Quarter: 2015Q3

REPORT INFORMATION
  Report Type: Spontaneous
  Country: US (occurrence: US)
  Receive Date: 20150821
  Receipt Date: 20150821
  Transmission Date: 20151125
  Serious: No
  Sender: FDA-Public Use
  Company Number: US-ROCHE-1307607

PATIENT
  Age: 58 Year
  Sex: Male

DRUGS (3)
  1. PEGASYS [Suspect]
     Active Substance: PEGINTERFERON ALFA-2A
     Indication: CHRONIC HEPATITIS C
     Dosage: 24-48 WEEKS THERAPY.
     Route: 058
     Dates: start: 20131114, end: 20140107
  2. RIBAVIRIN. [Suspect]
     Active Substance: RIBAVIRIN
     Indication: CHRONIC HEPATITIS C
     Dosage: IN DIVIDED DOSE: 600/600.
     Route: 065
     Dates: start: 20131114, end: 20140107
  3. BOCEPREVIR [Suspect]
     Active Substance: BOCEPREVIR
     Indication: CHRONIC HEPATITIS C
     Route: 065
     Dates: end: 20140107

REACTIONS (14)
  - Pain [Unknown]
  - Loss of consciousness [Unknown]
  - Blood urine present [Unknown]
  - Red blood cell count decreased [Unknown]
  - Weight decreased [Unknown]
  - Arthralgia [Unknown]
  - Dry skin [Unknown]
  - Haematochezia [Unknown]
  - Dizziness [Unknown]
  - Peripheral swelling [Unknown]
  - Hypotension [Unknown]
  - Fatigue [Unknown]
  - White blood cell count decreased [Unknown]
  - Painful defaecation [Unknown]

NARRATIVE: CASE EVENT DATE: 20140114
